FAERS Safety Report 7432874-4 (Version None)
Quarter: 2011Q2

REPORT INFORMATION
  Report Type: 
  Country: None (occurrence: None)
  Receive Date: 20110422
  Receipt Date: 20110408
  Transmission Date: 20111010
  Serious: Yes (Life-Threatening, Hospitalization)
  Sender: FDA-Public Use
  Company Number: FR-GENENTECH-315719

PATIENT
  Sex: Male

DRUGS (13)
  1. EZETIMIBE [Suspect]
     Indication: PRODUCT USED FOR UNKNOWN INDICATION
  2. FONZYLANE [Suspect]
     Indication: PRODUCT USED FOR UNKNOWN INDICATION
  3. LUCENTIS [Suspect]
     Indication: PRODUCT USED FOR UNKNOWN INDICATION
     Dosage: UNK
     Route: 031
  4. BISOPROLOL FUMARATE [Suspect]
     Indication: PRODUCT USED FOR UNKNOWN INDICATION
  5. COVERAM [Suspect]
     Indication: PRODUCT USED FOR UNKNOWN INDICATION
  6. LUCENTIS [Suspect]
     Dosage: UNK
     Route: 031
  7. LUCENTIS [Suspect]
     Dosage: UNK
     Route: 031
     Dates: start: 20100901
  8. TAHOR [Suspect]
     Indication: PRODUCT USED FOR UNKNOWN INDICATION
  9. LUCENTIS [Suspect]
     Dosage: UNK
     Route: 031
  10. ASPEGIC 325 [Suspect]
     Indication: PRODUCT USED FOR UNKNOWN INDICATION
  11. LUCENTIS [Suspect]
     Dosage: UNK
     Route: 031
  12. LUCENTIS [Suspect]
     Dosage: UNK
     Route: 031
  13. PLAVIX [Suspect]
     Indication: PRODUCT USED FOR UNKNOWN INDICATION

REACTIONS (1)
  - CARDIAC ARREST [None]
